FAERS Safety Report 11880685 (Version 1)
Quarter: 2015Q4

REPORT INFORMATION
  Report Type: Report from Study
  Country: PR (occurrence: PR)
  Receive Date: 20151230
  Receipt Date: 20151230
  Transmission Date: 20160305
  Serious: Yes (Other)
  Sender: FDA-Public Use
  Company Number: PR-ABBVIE-15K-131-1503862-00

PATIENT
  Sex: Male
  Weight: 47.67 kg

DRUGS (4)
  1. NORVASC [Concomitant]
     Active Substance: AMLODIPINE BESYLATE
     Indication: HYPERTENSION
     Route: 048
  2. HUMIRA [Suspect]
     Active Substance: ADALIMUMAB
     Indication: CROHN^S DISEASE
     Route: 058
     Dates: start: 2012, end: 2014
  3. RECLAST [Concomitant]
     Active Substance: ZOLEDRONIC ACID
     Indication: OSTEOPOROSIS
  4. LOSARTAN. [Concomitant]
     Active Substance: LOSARTAN
     Indication: HYPERTENSION
     Route: 048

REACTIONS (6)
  - Seasonal allergy [Not Recovered/Not Resolved]
  - Glaucoma [Unknown]
  - House dust allergy [Not Recovered/Not Resolved]
  - Cardiac disorder [Recovered/Resolved]
  - Parathyroid cyst [Unknown]
  - Dyspnoea [Recovered/Resolved]
